FAERS Safety Report 11157010 (Version 1)
Quarter: 2015Q2

REPORT INFORMATION
  Report Type: Spontaneous
  Country: US (occurrence: US)
  Receive Date: 20150602
  Receipt Date: 20150602
  Transmission Date: 20150821
  Serious: No
  Sender: FDA-Public Use
  Company Number: US-VERTEX PHARMACEUTICALS-2015-002369

PATIENT
  Age: 8 Year
  Sex: Male

DRUGS (7)
  1. PROBIOTIC [Concomitant]
     Active Substance: PROBIOTICS NOS
     Indication: CYSTIC FIBROSIS
     Route: 065
  2. KALYDECO [Suspect]
     Active Substance: IVACAFTOR
     Dosage: UNK, QD
     Route: 048
  3. PULMOZYME [Concomitant]
     Active Substance: DORNASE ALFA
     Indication: CYSTIC FIBROSIS
     Route: 065
  4. KALYDECO [Suspect]
     Active Substance: IVACAFTOR
     Dosage: UNK, BID
     Route: 048
  5. ALBUTEROL. [Concomitant]
     Active Substance: ALBUTEROL
     Indication: CYSTIC FIBROSIS
     Route: 065
  6. FASLODEX [Concomitant]
     Active Substance: FULVESTRANT
     Indication: CYSTIC FIBROSIS
     Route: 065
  7. KALYDECO [Suspect]
     Active Substance: IVACAFTOR
     Indication: CYSTIC FIBROSIS
     Dosage: UNK
     Route: 048
     Dates: start: 20150413

REACTIONS (1)
  - Hepatic enzyme abnormal [Recovered/Resolved]

NARRATIVE: CASE EVENT DATE: 20150413
